FAERS Safety Report 7707835-8 (Version None)
Quarter: 2011Q3

REPORT INFORMATION
  Report Type: 
  Country: None (occurrence: None)
  Receive Date: 20110824
  Receipt Date: 20110217
  Transmission Date: 20111222
  Serious: No
  Sender: FDA-Public Use
  Company Number: US-BAYER-2011-036769

PATIENT

DRUGS (1)
  1. MAGNEVIST [Suspect]
     Dosage: 14 ML, UNK

REACTIONS (1)
  - NAUSEA [None]
